FAERS Safety Report 4715733-7 (Version None)
Quarter: 2005Q2

REPORT INFORMATION
  Report Type: 
  Country: None (occurrence: None)
  Receive Date: 20050629
  Receipt Date: 20050310
  Transmission Date: 20051028
  Serious: No
  Sender: FDA-Public Use
  Company Number: SP00412 (0)

PATIENT
  Age: 33 Year
  Sex: Female

DRUGS (2)
  1. XIFAXIN(TABLETS) [Suspect]
     Indication: DIARRHOEA
     Dosage: 200MG/BID, ORAL
     Route: 048
     Dates: start: 20041016, end: 20041001
  2. MALARONE [Suspect]
     Indication: MALARIA
     Route: 065
     Dates: start: 20051015

REACTIONS (1)
  - RASH [None]
